FAERS Safety Report 7461285-0 (Version None)
Quarter: 2011Q2

REPORT INFORMATION
  Report Type: 
  Country: None (occurrence: None)
  Receive Date: 20110506
  Receipt Date: 20110426
  Transmission Date: 20111010
  Serious: Yes (Hospitalization)
  Sender: FDA-Public Use
  Company Number: BR-BIOGENIDEC-2011BI016352

PATIENT
  Age: 49 Year
  Sex: Female
  Weight: 51 kg

DRUGS (2)
  1. AVONEX [Suspect]
     Indication: MULTIPLE SCLEROSIS
     Route: 030
     Dates: start: 20060101, end: 20110401
  2. AVONEX [Suspect]

REACTIONS (4)
  - MULTIPLE SCLEROSIS RELAPSE [None]
  - COGNITIVE DISORDER [None]
  - CONVULSION [None]
  - SYNCOPE [None]
